FAERS Safety Report 5954315-6 (Version None)
Quarter: 2008Q4

REPORT INFORMATION
  Report Type: 
  Country: None (occurrence: None)
  Receive Date: 20081113
  Receipt Date: 20081113
  Transmission Date: 20090506
  Serious: No
  Sender: FDA-Public Use
  Company Number: None

PATIENT
  Age: 32 Year
  Sex: Female
  Weight: 61.2356 kg

DRUGS (1)
  1. BUDEPRION XL 150 MG TEVA [Suspect]

REACTIONS (21)
  - ABDOMINAL PAIN UPPER [None]
  - AGGRESSION [None]
  - AGITATION [None]
  - ANXIETY [None]
  - CHEST PAIN [None]
  - DIABETES MELLITUS [None]
  - DIARRHOEA [None]
  - DIZZINESS [None]
  - DYSPNOEA [None]
  - ECONOMIC PROBLEM [None]
  - INSOMNIA [None]
  - MIGRAINE [None]
  - MOOD SWINGS [None]
  - MYOCARDIAL INFARCTION [None]
  - PALPITATIONS [None]
  - POLLAKIURIA [None]
  - PRODUCT QUALITY ISSUE [None]
  - THIRST [None]
  - URTICARIA [None]
  - WEIGHT INCREASED [None]
  - WEIGHT LOSS POOR [None]
